FAERS Safety Report 10739036 (Version 2)
Quarter: 2015Q2

REPORT INFORMATION
  Report Type: Spontaneous
  Country: US (occurrence: US)
  Receive Date: 20150126
  Receipt Date: 20150624
  Transmission Date: 20150821
  Serious: Yes (Death, Other)
  Sender: FDA-Public Use
  Company Number: US-GLAXOSMITHKLINE-US2015GSK009445

PATIENT
  Sex: Male
  Weight: 107.94 kg

DRUGS (1)
  1. VOTRIENT [Suspect]
     Active Substance: PAZOPANIB HYDROCHLORIDE
     Indication: PANCREATIC CARCINOMA
     Dosage: 200 MG, UNK
     Route: 048
     Dates: start: 20141023, end: 20141220

REACTIONS (1)
  - Pancreatic carcinoma [Fatal]
